FAERS Safety Report 20381137 (Version 1)
Quarter: 2022Q1

REPORT INFORMATION
  Report Type: Spontaneous
  Country: US (occurrence: US)
  Receive Date: 20220127
  Receipt Date: 20220127
  Transmission Date: 20220423
  Serious: No
  Sender: FDA-Public Use
  Company Number: US-CADILA HEALTHCARE LIMITED-US-ZYDUS-072165

PATIENT

DRUGS (2)
  1. COLESEVELAM [Suspect]
     Active Substance: COLESEVELAM
     Indication: Hypercholesterolaemia
     Dosage: 625 MILLIGRAM, TID
     Route: 048
     Dates: start: 20211120, end: 20211123
  2. TAMSULOSIN [Concomitant]
     Active Substance: TAMSULOSIN
     Indication: Product used for unknown indication
     Dosage: UNK
     Route: 065

REACTIONS (2)
  - Taste disorder [Not Recovered/Not Resolved]
  - Product substitution issue [Recovered/Resolved]

NARRATIVE: CASE EVENT DATE: 20211101
